FAERS Safety Report 5346168-4 (Version None)
Quarter: 2007Q2

REPORT INFORMATION
  Report Type: 
  Country: None (occurrence: None)
  Receive Date: 20070605
  Receipt Date: 20070529
  Transmission Date: 20071010
  Serious: Yes (Other)
  Sender: FDA-Public Use
  Company Number: CA-JNJFOC-20070504956

PATIENT
  Sex: Male

DRUGS (1)
  1. RISPERDAL [Suspect]
     Indication: SCHIZOPHRENIA

REACTIONS (7)
  - DROOLING [None]
  - DYSKINESIA [None]
  - PSORIASIS [None]
  - STEREOTYPY [None]
  - TOOTHACHE [None]
  - TREMOR [None]
  - TRISMUS [None]
